FAERS Safety Report 5225027-1 (Version None)
Quarter: 2007Q1

REPORT INFORMATION
  Report Type: 
  Country: None (occurrence: None)
  Receive Date: 20070131
  Receipt Date: 20070123
  Transmission Date: 20070707
  Serious: Yes (Other)
  Sender: FDA-Public Use
  Company Number: US-GLAXOSMITHKLINE-A0631935A

PATIENT
  Age: 17 Year
  Sex: Male

DRUGS (5)
  1. LAMICTAL [Suspect]
     Indication: EPILEPSY
     Dosage: 300MG TWICE PER DAY
     Route: 048
     Dates: start: 20040101
  2. DORYX [Suspect]
  3. ADDERALL XR 10 [Suspect]
     Dosage: 20MG IN THE MORNING
  4. FLUOXETINE [Suspect]
     Dosage: 10MG IN THE MORNING
  5. M.V.I. [Concomitant]

REACTIONS (8)
  - CONVULSION [None]
  - CONVULSIVE THRESHOLD LOWERED [None]
  - DRUG INTERACTION [None]
  - FALL [None]
  - LOCAL SWELLING [None]
  - TELANGIECTASIA [None]
  - THROMBOCYTHAEMIA [None]
  - WEIGHT INCREASED [None]
